FAERS Safety Report 10518749 (Version 2)
Quarter: 2014Q4

REPORT INFORMATION
  Report Type: Spontaneous
  Country: FR (occurrence: IE)
  Receive Date: 20141015
  Receipt Date: 20141015
  Transmission Date: 20150528
  Serious: Yes (Other)
  Sender: FDA-Public Use
  Company Number: FR-MYLANLABS-2004S1003547

PATIENT

DRUGS (15)
  1. MERCAPTAMINE BITARTRATE [Suspect]
     Active Substance: CYSTEAMINE
     Dosage: 400 MG, QD
     Route: 048
     Dates: start: 20010510
  2. MERCAPTAMINE [Concomitant]
     Active Substance: CYSTEAMINE
     Dosage: UNK
     Route: 047
     Dates: start: 200105
  3. MERCAPTAMINE BITARTRATE [Suspect]
     Active Substance: CYSTEAMINE
     Dosage: 110 MG/KG, QD
     Route: 048
     Dates: start: 20041019
  4. MERCAPTAMINE BITARTRATE [Suspect]
     Active Substance: CYSTEAMINE
     Dosage: 90 MG/KG, QD
     Route: 048
     Dates: start: 20041126
  5. MERCAPTAMINE BITARTRATE [Suspect]
     Active Substance: CYSTEAMINE
     Dosage: 75 MG, QD
     Route: 048
     Dates: start: 20041203
  6. MERCAPTAMINE BITARTRATE [Suspect]
     Active Substance: CYSTEAMINE
     Dosage: 1350 G, QD
     Route: 048
     Dates: start: 20050106
  7. MERCAPTAMINE BITARTRATE [Suspect]
     Active Substance: CYSTEAMINE
     Dosage: 90 MG/KG,QD
     Route: 048
     Dates: start: 20020130
  8. MERCAPTAMINE BITARTRATE [Suspect]
     Active Substance: CYSTEAMINE
     Dosage: 110 MG/KG, QD
     Route: 048
     Dates: start: 20040622
  9. SOMATROPIN [Concomitant]
     Active Substance: SOMATROPIN
     Dosage: UNK
     Dates: start: 200404
  10. CARNITINE [Concomitant]
     Active Substance: CARNITINE
     Dosage: UNK
     Dates: start: 200305
  11. POTASSIUM CITRATE. [Concomitant]
     Active Substance: POTASSIUM CITRATE
     Dosage: UNK
     Dates: start: 200105
  12. MERCAPTAMINE BITARTRATE [Suspect]
     Active Substance: CYSTEAMINE
     Dosage: 100 MG/KG, QD
     Route: 048
     Dates: start: 20030610
  13. LEVOTHYROXINE [Concomitant]
     Active Substance: LEVOTHYROXINE
     Dosage: UNK
     Dates: start: 200309
  14. INDOMETACIN [Concomitant]
     Active Substance: INDOMETHACIN
     Dosage: UNK
     Dates: start: 200111
  15. MERCAPTAMINE BITARTRATE [Suspect]
     Active Substance: CYSTEAMINE
     Indication: CYSTINOSIS
     Dosage: UNK UNK,QD
     Route: 048
     Dates: start: 20010502

REACTIONS (3)
  - Ehlers-Danlos syndrome [Not Recovered/Not Resolved]
  - Intravascular papillary endothelial hyperplasia [Not Recovered/Not Resolved]
  - Skin fragility [Unknown]

NARRATIVE: CASE EVENT DATE: 2004
